FAERS Safety Report 5380946-0 (Version None)
Quarter: 2007Q2

REPORT INFORMATION
  Report Type: 
  Country: None (occurrence: None)
  Receive Date: 20070629
  Receipt Date: 20061206
  Transmission Date: 20071010
  Serious: Yes (Other)
  Sender: FDA-Public Use
  Company Number: US200612000911

PATIENT
  Age: 64 Year
  Sex: Male

DRUGS (3)
  1. HUMALOG [Suspect]
     Indication: DIABETES MELLITUS
     Dosage: SUB. PUMP, SUB. PUMP
     Dates: start: 19980101
  2. HUMALOG [Suspect]
     Indication: DIABETES MELLITUS
     Dosage: SUB. PUMP, SUB. PUMP
     Dates: start: 19980101
  3. HUMALOG [Suspect]

REACTIONS (4)
  - BLINDNESS UNILATERAL [None]
  - BLOOD GLUCOSE INCREASED [None]
  - DIABETIC RETINOPATHY [None]
  - VISION BLURRED [None]
